FAERS Safety Report 15795238 (Version 1)
Quarter: 2019Q1

REPORT INFORMATION
  Report Type: Spontaneous
  Country: US (occurrence: US)
  Receive Date: 20190107
  Receipt Date: 20190107
  Transmission Date: 20190417
  Serious: Yes (Disabling, Other)
  Sender: FDA-Public Use
  Company Number: None

PATIENT
  Sex: Female
  Weight: 19.35 kg

DRUGS (1)
  1. MIRALAX [Suspect]
     Active Substance: POLYETHYLENE GLYCOL 3350
     Indication: CONSTIPATION

REACTIONS (12)
  - Abnormal behaviour [None]
  - Diplopia [None]
  - Toothache [None]
  - Screaming [None]
  - Neurological symptom [None]
  - Dry skin [None]
  - Feeling hot [None]
  - Aggression [None]
  - Panic attack [None]
  - Strabismus [None]
  - Dry mouth [None]
  - Paraesthesia [None]
